FAERS Safety Report 23776377 (Version 4)
Quarter: 2025Q1

REPORT INFORMATION
  Report Type: Spontaneous
  Country: US (occurrence: US)
  Receive Date: 20240424
  Receipt Date: 20250303
  Transmission Date: 20250409
  Serious: No
  Sender: UCB
  Company Number: US-UCBSA-2024009128

PATIENT
  Sex: Female
  Weight: 78.93 kg

DRUGS (5)
  1. RYSTIGGO [Suspect]
     Active Substance: ROZANOLIXIZUMAB-NOLI
     Indication: Myasthenia gravis
     Dosage: 560 MILLIGRAM, WEEKLY (QW) FOR 6 WEEKS
     Route: 058
     Dates: start: 20240131, end: 2024
  2. RYSTIGGO [Suspect]
     Active Substance: ROZANOLIXIZUMAB-NOLI
     Dosage: 560 MILLIGRAM, WEEKLY (QW)
     Route: 058
     Dates: start: 20240214
  3. ZYRTEC [Concomitant]
     Active Substance: CETIRIZINE HYDROCHLORIDE
     Indication: Product used for unknown indication
  4. FLONASE [Concomitant]
     Active Substance: FLUTICASONE PROPIONATE
     Indication: Product used for unknown indication
  5. XANAX [Concomitant]
     Active Substance: ALPRAZOLAM
     Indication: Product used for unknown indication

REACTIONS (5)
  - Infusion site pruritus [Recovered/Resolved]
  - Fatigue [Not Recovered/Not Resolved]
  - Product administration error [Unknown]
  - Therapeutic response shortened [Unknown]
  - Device malfunction [Unknown]

NARRATIVE: CASE EVENT DATE: 20240101
